FAERS Safety Report 23897244 (Version 1)
Quarter: 2024Q2

REPORT INFORMATION
  Report Type: Spontaneous
  Country: TN (occurrence: TN)
  Receive Date: 20240524
  Receipt Date: 20240524
  Transmission Date: 20240716
  Serious: Yes (Death, Hospitalization)
  Sender: FDA-Public Use
  Company Number: TN-MYLANLABS-2024M1047103

PATIENT
  Age: 42 Year
  Sex: Female

DRUGS (1)
  1. CISPLATIN [Suspect]
     Active Substance: CISPLATIN
     Indication: Adenocarcinoma of the cervix
     Dosage: UNK; RECEIVED FOUR COURSES
     Route: 065

REACTIONS (8)
  - Necrotising fasciitis [Fatal]
  - Female genital tract fistula [Fatal]
  - Myositis [Fatal]
  - Peripheral artery thrombosis [Fatal]
  - Deep vein thrombosis [Fatal]
  - Musculoskeletal disorder [Fatal]
  - Multiple organ dysfunction syndrome [Fatal]
  - Sepsis [Fatal]
